FAERS Safety Report 12126260 (Version 1)
Quarter: 2016Q1

REPORT INFORMATION
  Report Type: Spontaneous
  Country: US (occurrence: US)
  Receive Date: 20160229
  Receipt Date: 20160229
  Transmission Date: 20160526
  Serious: Yes (Hospitalization)
  Sender: FDA-Public Use
  Company Number: US-BIOGEN-2014BI116745

PATIENT
  Age: 36 Year
  Sex: Female
  Weight: 136 kg

DRUGS (4)
  1. TYSABRI [Suspect]
     Active Substance: NATALIZUMAB
     Indication: MULTIPLE SCLEROSIS
     Route: 042
     Dates: start: 2013
  2. AMPYRA [Concomitant]
     Active Substance: DALFAMPRIDINE
     Indication: GAIT DISTURBANCE
  3. AMPYRA [Concomitant]
     Active Substance: DALFAMPRIDINE
     Indication: MULTIPLE SCLEROSIS
     Route: 048
     Dates: start: 2013
  4. AMPYRA [Concomitant]
     Active Substance: DALFAMPRIDINE
     Indication: BALANCE DISORDER

REACTIONS (5)
  - Central nervous system lesion [Not Recovered/Not Resolved]
  - Inflammation [Unknown]
  - Fall [Recovered/Resolved]
  - Pain in extremity [Unknown]
  - Dysgraphia [Unknown]

NARRATIVE: CASE EVENT DATE: 20141023
